FAERS Safety Report 8787619 (Version 1)
Quarter: 2012Q4

REPORT INFORMATION
  Report Type: 
  Country: BR (occurrence: BR)
  Receive Date: 20120914
  Receipt Date: 20120914
  Transmission Date: 20130627
  Serious: Yes (Other)
  Sender: FDA-Public Use
  Company Number: PHHY2012BR079293

PATIENT
  Age: 59 Year
  Sex: Male
  Weight: 97 kg

DRUGS (5)
  1. DIOVAN HCT [Suspect]
     Dosage: 160/12.5mg, UNK
  2. METFORMIN [Suspect]
     Dosage: 850 mg, UNK
  3. GLIMEPIRIDE [Suspect]
     Dosage: 4 mg, UNK
  4. ATORVASTATIN [Suspect]
     Dosage: 20 mg, UNK
  5. AAS [Suspect]
     Dosage: 100 mg, UNK

REACTIONS (9)
  - Glycosylated haemoglobin increased [Recovering/Resolving]
  - Body mass index increased [Recovering/Resolving]
  - Blood glucose increased [Recovering/Resolving]
  - Blood pressure systolic increased [Recovering/Resolving]
  - Hypoaesthesia [Unknown]
  - Weight decreased [Unknown]
  - Hepatic steatosis [Unknown]
  - Microalbuminuria [Unknown]
  - Waist circumference increased [Unknown]
